FAERS Safety Report 9411275 (Version 3)
Quarter: 2013Q3

REPORT INFORMATION
  Report Type: Spontaneous
  Country: US (occurrence: US)
  Receive Date: 20130722
  Receipt Date: 20130916
  Transmission Date: 20140515
  Serious: Yes (Death, Hospitalization)
  Sender: FDA-Public Use
  Company Number: US-BIOGENIDEC-2013BI064317

PATIENT
  Age: 58 Year
  Sex: Female

DRUGS (9)
  1. TYSABRI [Suspect]
     Indication: MULTIPLE SCLEROSIS
     Route: 042
     Dates: start: 20110823, end: 201306
  2. AVONEX [Concomitant]
     Indication: MULTIPLE SCLEROSIS
     Route: 030
  3. CARBAMAZEPINE [Concomitant]
  4. DIAZEPAM [Concomitant]
  5. LISINOPRIL [Concomitant]
  6. CELEBREX [Concomitant]
  7. MECLIZINE [Concomitant]
  8. FLUOXETINE [Concomitant]
  9. TRAMADOL [Concomitant]

REACTIONS (3)
  - Multiple sclerosis [Fatal]
  - Pneumonia [Unknown]
  - Septic shock [Unknown]
